FAERS Safety Report 13951501 (Version 1)
Quarter: 2017Q3

REPORT INFORMATION
  Report Type: Spontaneous
  Country: US (occurrence: US)
  Receive Date: 20170908
  Receipt Date: 20170908
  Transmission Date: 20171128
  Serious: No
  Sender: FDA-Public Use
  Company Number: US-JAZZ-JPI-P-029323

PATIENT
  Age: 48 Year
  Sex: Male
  Weight: 98.18 kg

DRUGS (4)
  1. XYREM [Suspect]
     Active Substance: SODIUM OXYBATE
     Indication: NARCOLEPSY
     Dosage: SINGLE (3 GM 1ST DOSE/5 GM 2ND DOSE)
     Route: 048
     Dates: start: 20080903
  2. KLONOPIN [Suspect]
     Active Substance: CLONAZEPAM
     Indication: TRIGEMINAL NEURALGIA
     Dosage: SINGLE (10 MG DAILY)
     Route: 048
  3. XYREM [Suspect]
     Active Substance: SODIUM OXYBATE
     Dosage: 1.75 G, BID
     Route: 048
     Dates: start: 2012, end: 2012
  4. XYREM [Suspect]
     Active Substance: SODIUM OXYBATE
     Indication: SLEEP DISORDER
     Dosage: 2.25 G, BID
     Route: 048
     Dates: start: 2012, end: 2012

REACTIONS (6)
  - Swelling [Recovered/Resolved]
  - Pain [Recovered/Resolved]
  - Somnolence [Recovered/Resolved]
  - Feeling abnormal [Recovered/Resolved]
  - Insomnia [Not Recovered/Not Resolved]
  - Hangover [Recovered/Resolved]

NARRATIVE: CASE EVENT DATE: 200809
